FAERS Safety Report 9286740 (Version 3)
Quarter: 2013Q3

REPORT INFORMATION
  Report Type: Spontaneous
  Country: UA (occurrence: None)
  Receive Date: 20130509
  Receipt Date: 20130709
  Transmission Date: 20140515
  Serious: Yes (Other)
  Sender: FDA-Public Use
  Company Number: NGX_01752_2013

PATIENT
  Age: 68 Year
  Sex: Female
  Weight: 66 kg

DRUGS (4)
  1. QUTENZA [Suspect]
     Indication: DIABETIC NEUROPATHY
     Dosage: ( 2 DF, [PATCH, BIMONTHLY] TOPICAL)
     Dates: start: 20121126, end: 20130327
  2. INSULIN FARMASULIN [Concomitant]
  3. CARVEDILOL [Concomitant]
  4. ACIDIUM ACETILSALICILICIUM [Concomitant]

REACTIONS (1)
  - Rectal cancer [None]
